FAERS Safety Report 11933536 (Version 1)
Quarter: 2016Q1

REPORT INFORMATION
  Report Type: Spontaneous
  Country: US (occurrence: US)
  Receive Date: 20160121
  Receipt Date: 20160121
  Transmission Date: 20160526
  Serious: No
  Sender: FDA-Public Use
  Company Number: US-ELI_LILLY_AND_COMPANY-US201601007083

PATIENT

DRUGS (12)
  1. VITAMINS WITH MINERALS [Concomitant]
     Active Substance: MINERALS\VITAMINS
     Dosage: UNK, QD:1/2
     Route: 065
  2. CYMBALTA [Suspect]
     Active Substance: DULOXETINE HYDROCHLORIDE
     Indication: PRODUCT USED FOR UNKNOWN INDICATION
     Dosage: 1 DF, UNKNOWN
     Route: 065
  3. CLONAZEPAM. [Concomitant]
     Active Substance: CLONAZEPAM
     Dosage: 5 MG, OTHER: EVERY 8 HOURS
     Route: 065
     Dates: start: 201510
  4. ESTER C                            /00008001/ [Concomitant]
     Dosage: 500 MG, QOD
     Route: 065
  5. QUETIAPINE [Concomitant]
     Active Substance: QUETIAPINE
     Dosage: 50 MG, UNKNOWN
     Route: 065
     Dates: start: 20151216
  6. ADDITIVA VITAMIN E [Concomitant]
     Dosage: 400 IU, OTHER: 3-5 DAYS A WEEK
     Route: 065
  7. MIRALAX [Concomitant]
     Active Substance: POLYETHYLENE GLYCOL 3350
     Indication: IRRITABLE BOWEL SYNDROME
     Dosage: UNK, QOD
     Route: 065
  8. CITRUCEL [Concomitant]
     Active Substance: METHYLCELLULOSE (4000 MPA.S)
     Indication: IRRITABLE BOWEL SYNDROME
     Dosage: UNK, QOD
     Route: 065
  9. ZITHROMAX [Suspect]
     Active Substance: AZITHROMYCIN DIHYDRATE
     Indication: PRODUCT USED FOR UNKNOWN INDICATION
     Dosage: 1 DF, UNKNOWN
     Route: 065
  10. VITAMIN D3 [Concomitant]
     Active Substance: CHOLECALCIFEROL
     Dosage: 100 IU, QD
     Route: 065
  11. EFFEXOR [Suspect]
     Active Substance: VENLAFAXINE HYDROCHLORIDE
     Indication: PRODUCT USED FOR UNKNOWN INDICATION
     Dosage: 225 MG, EACH MORNING (75MGX3 CAPSULES AM WITH FOOD)
     Route: 065
  12. QUETIAPINE [Concomitant]
     Active Substance: QUETIAPINE
     Dosage: 50 MG, EACH EVENING (25MGX2 AT NIGHT )
     Route: 065
     Dates: start: 20151214, end: 20151215

REACTIONS (3)
  - Urticaria [Unknown]
  - Irritable bowel syndrome [Unknown]
  - Abdominal pain upper [Unknown]
